FAERS Safety Report 4847191-6 (Version None)
Quarter: 2005Q4

REPORT INFORMATION
  Report Type: 
  Country: None (occurrence: None)
  Receive Date: 20051205
  Receipt Date: 20051121
  Transmission Date: 20060501
  Serious: Yes (Other)
  Sender: FDA-Public Use
  Company Number: 2005158771

PATIENT
  Age: 82 Year
  Sex: Male
  Weight: 73.4827 kg

DRUGS (7)
  1. ZITHROMAX [Suspect]
     Indication: UPPER RESPIRATORY TRACT INFECTION
     Dosage: 250 MG (250 MG, 1 IN 1 D)
     Dates: start: 20051010
  2. LIPITOR [Suspect]
     Indication: BLOOD CHOLESTEROL
     Dosage: 20 MG (10 MG, 1 IN 1 D)
     Dates: end: 20051001
  3. ATENOLOL [Concomitant]
  4. HYTRIN [Concomitant]
  5. ASPIRIN [Concomitant]
  6. PLAVIX [Concomitant]
  7. HYDROCHLOROTHIAZIDE [Concomitant]

REACTIONS (3)
  - ABASIA [None]
  - OEDEMA PERIPHERAL [None]
  - PAIN IN EXTREMITY [None]
